FAERS Safety Report 9114478 (Version 1)
Quarter: 2013Q1

REPORT INFORMATION
  Report Type: Spontaneous
  Country: US (occurrence: None)
  Receive Date: 20130220
  Receipt Date: 20130220
  Transmission Date: 20140127
  Serious: No
  Sender: FDA-Public Use
  Company Number: None

PATIENT
  Age: 28 Year
  Sex: 0
  Weight: 68.04 kg

DRUGS (1)
  1. CLARITIN-D [Suspect]
     Dosage: 1 TABLET EVERY 12 HOUR?

REACTIONS (3)
  - Social phobia [None]
  - Anxiety [None]
  - Confusional state [None]
